FAERS Safety Report 6127916-2 (Version None)
Quarter: 2009Q1

REPORT INFORMATION
  Report Type: 
  Country: None (occurrence: None)
  Receive Date: 20090319
  Receipt Date: 20090305
  Transmission Date: 20090719
  Serious: No
  Sender: FDA-Public Use
  Company Number: 2007-168013-NL

PATIENT
  Sex: Male

DRUGS (1)
  1. MIRTAZAPINE [Suspect]
     Dosage: 30 MG QD ORAL
     Route: 048
     Dates: start: 20070501

REACTIONS (1)
  - CD4 LYMPHOCYTES DECREASED [None]
